FAERS Safety Report 5526527-7 (Version None)
Quarter: 2007Q4

REPORT INFORMATION
  Report Type: 
  Country: None (occurrence: None)
  Receive Date: 20071121
  Receipt Date: 20071121
  Transmission Date: 20080405
  Serious: No
  Sender: FDA-Public Use
  Company Number: None

PATIENT
  Age: 50 Year
  Sex: Female
  Weight: 86.1834 kg

DRUGS (1)
  1. CARVEDILOL [Suspect]
     Dosage: 1 TABLET  2 TWICE
     Dates: start: 20071105, end: 20071120

REACTIONS (12)
  - ALOPECIA [None]
  - ARTHRALGIA [None]
  - CHROMATURIA [None]
  - DYSURIA [None]
  - GAIT DISTURBANCE [None]
  - JOINT SWELLING [None]
  - LIMB DISCOMFORT [None]
  - MADAROSIS [None]
  - MUSCULOSKELETAL DISCOMFORT [None]
  - NAUSEA [None]
  - PAIN [None]
  - SWELLING [None]
